FAERS Safety Report 23121744 (Version 2)
Quarter: 2023Q4

REPORT INFORMATION
  Report Type: Spontaneous
  Country: US (occurrence: US)
  Receive Date: 20231029
  Receipt Date: 20231129
  Transmission Date: 20240109
  Serious: No
  Sender: FDA-Public Use
  Company Number: US-BAUSCHBL-2023BNL010405

PATIENT
  Age: 74 Year
  Sex: Female

DRUGS (2)
  1. ERYTHROMYCIN [Suspect]
     Active Substance: ERYTHROMYCIN
     Indication: Dry eye
     Route: 047
     Dates: start: 2018
  2. ERYTHROMYCIN [Suspect]
     Active Substance: ERYTHROMYCIN
     Indication: Product use in unapproved indication
     Route: 047
     Dates: start: 20231017

REACTIONS (9)
  - Foreign body sensation in eyes [Recovered/Resolved]
  - Eye pruritus [Recovered/Resolved]
  - Photophobia [Not Recovered/Not Resolved]
  - Periorbital swelling [Not Recovered/Not Resolved]
  - Eye irritation [Recovered/Resolved]
  - Erythema [Not Recovered/Not Resolved]
  - Product quality issue [Unknown]
  - Product outer packaging issue [Unknown]
  - Product use in unapproved indication [Unknown]

NARRATIVE: CASE EVENT DATE: 20231001
